FAERS Safety Report 4349031-0 (Version None)
Quarter: 2004Q2

REPORT INFORMATION
  Report Type: 
  Country: None (occurrence: None)
  Receive Date: 20040422
  Receipt Date: 20040408
  Transmission Date: 20050107
  Serious: Yes (Hospitalization)
  Sender: FDA-Public Use
  Company Number: 236297

PATIENT
  Age: 71 Year
  Sex: Male

DRUGS (1)
  1. NOVOSEVEN [Suspect]
     Indication: ILL-DEFINED DISORDER
     Dosage: 90 UG/KG
     Dates: start: 20040327, end: 20040401

REACTIONS (3)
  - DYSPHASIA [None]
  - HEMIPARESIS [None]
  - THROMBOTIC STROKE [None]
